FAERS Safety Report 6391929-6 (Version None)
Quarter: 2009Q4

REPORT INFORMATION
  Report Type: 
  Country: None (occurrence: None)
  Receive Date: 20091007
  Receipt Date: 20090928
  Transmission Date: 20100525
  Serious: Yes (Death, Life-Threatening)
  Sender: FDA-Public Use
  Company Number: A0789167A

PATIENT
  Age: 80 Year
  Sex: Male

DRUGS (2)
  1. DUTASTERIDE [Suspect]
     Indication: PROSTATE CANCER
     Dosage: 3.5MG PER DAY
     Route: 048
     Dates: start: 20080922
  2. CASODEX [Suspect]
     Indication: PROSTATE CANCER
     Dosage: 50MG PER DAY
     Route: 048
     Dates: start: 20081008

REACTIONS (2)
  - COMPLETED SUICIDE [None]
  - RECTAL CANCER [None]
